FAERS Safety Report 6092402-5 (Version None)
Quarter: 2009Q1

REPORT INFORMATION
  Report Type: 
  Country: None (occurrence: None)
  Receive Date: 20090225
  Receipt Date: 20090206
  Transmission Date: 20090719
  Serious: Yes (Hospitalization, Other)
  Sender: FDA-Public Use
  Company Number: PHHY2008JP30626

PATIENT
  Sex: Male
  Weight: 51 kg

DRUGS (14)
  1. DIOVAN [Suspect]
     Indication: HYPERTENSION
     Dosage: 40 MG, QD
     Route: 048
     Dates: start: 20060628, end: 20060924
  2. DIOVAN [Suspect]
     Indication: CARDIAC FAILURE CHRONIC
     Dosage: 80 MG, ONCE/SINGLE
     Route: 048
     Dates: start: 20060925, end: 20080120
  3. DIOVAN [Suspect]
     Dosage: 120 MG, QD
     Route: 048
     Dates: start: 20080121, end: 20081024
  4. GASTER D [Concomitant]
     Indication: GASTRIC ULCER
     Dosage: 20 MG DAILY
     Route: 048
     Dates: start: 20021016, end: 20081024
  5. ALLOPURINOL [Concomitant]
     Indication: HYPERURICAEMIA
     Dosage: 0.5 DF, UNK
     Route: 048
     Dates: start: 20021016, end: 20081027
  6. SIGMART [Concomitant]
     Indication: ANGINA PECTORIS
     Dosage: 15 MG, UNK
     Route: 048
     Dates: start: 20041004, end: 20081024
  7. DIGOXIN [Concomitant]
     Indication: HYPERTENSION
     Dosage: 0.125 MG, UNK
     Route: 048
     Dates: start: 20060628, end: 20081027
  8. ALOSENN [Concomitant]
     Indication: CONSTIPATION
     Dosage: 0.5 G, UNK
     Route: 048
     Dates: start: 20071001, end: 20081024
  9. RIZE [Concomitant]
     Indication: PSYCHOSOMATIC DISEASE
     Dosage: 2 DF, UNK
     Route: 048
     Dates: start: 20021016, end: 20081027
  10. LENDORMIN [Concomitant]
     Indication: INSOMNIA
     Dosage: 1 DF, UNK
     Route: 048
     Dates: start: 20030903, end: 20081027
  11. URSO 250 [Concomitant]
     Indication: CHRONIC HEPATITIS
     Dosage: 3 DF, UNK
     Route: 048
     Dates: start: 20050221
  12. LASIX [Concomitant]
     Indication: HYPERTENSION
     Dosage: 0.5 DF, UNK
     Route: 048
     Dates: start: 20051226, end: 20081024
  13. MS REISHIPPU ASTRA [Concomitant]
     Indication: BACK PAIN
     Dosage: 20 G, UNK
     Dates: start: 20080512, end: 20081024
  14. FELBINAC [Concomitant]
     Indication: BACK PAIN
     Dosage: UNK
     Dates: start: 20071001, end: 20081124

REACTIONS (12)
  - BLOOD CREATINE PHOSPHOKINASE INCREASED [None]
  - C-REACTIVE PROTEIN INCREASED [None]
  - CRANIOTOMY [None]
  - DECREASED APPETITE [None]
  - GAIT DISTURBANCE [None]
  - HAEMATOMA EVACUATION [None]
  - MALAISE [None]
  - MUSCULAR WEAKNESS [None]
  - PYREXIA [None]
  - REHABILITATION THERAPY [None]
  - RHABDOMYOLYSIS [None]
  - SUBDURAL HAEMATOMA [None]
